FAERS Safety Report 8388234-5 (Version None)
Quarter: 2012Q2

REPORT INFORMATION
  Report Type: 
  Country: None (occurrence: None)
  Receive Date: 20120525
  Receipt Date: 20120517
  Transmission Date: 20120825
  Serious: Yes (Hospitalization)
  Sender: FDA-Public Use
  Company Number: JP-VERTEX PHARMACEUTICALS INC.-AE-2012-007616

PATIENT
  Age: 70 Year
  Sex: Male

DRUGS (9)
  1. TELAVIC (TELAPREVIR) [Suspect]
     Indication: HEPATITIS C
     Route: 048
     Dates: start: 20120221
  2. PEG-INTRON [Concomitant]
     Indication: HEPATITIS C
     Route: 051
     Dates: start: 20120221
  3. REBETOL [Concomitant]
     Indication: HEPATITIS C
     Route: 048
     Dates: start: 20120221, end: 20120327
  4. MEVARICH [Concomitant]
     Route: 048
  5. REBETOL [Concomitant]
     Route: 048
     Dates: start: 20120328
  6. LOXOPROFEN [Concomitant]
     Route: 048
     Dates: start: 20120220, end: 20120318
  7. URSO 250 [Concomitant]
     Route: 048
  8. BETAMETHASONE [Concomitant]
     Route: 051
  9. MUCOSTA [Concomitant]
     Route: 048
     Dates: start: 20120220, end: 20120318

REACTIONS (2)
  - RASH [None]
  - PNEUMONIA [None]
